FAERS Safety Report 5072760-0 (Version None)
Quarter: 2006Q3

REPORT INFORMATION
  Report Type: 
  Country: None (occurrence: None)
  Receive Date: 20060807
  Receipt Date: 20060705
  Transmission Date: 20061208
  Serious: Yes (Death)
  Sender: FDA-Public Use
  Company Number: US-BRISTOL-MYERS SQUIBB COMPANY-13432919

PATIENT
  Age: 49 Year
  Sex: Male
  Weight: 73 kg

DRUGS (12)
  1. COUMADIN [Suspect]
     Indication: CORONARY ANGIOPLASTY
     Route: 048
     Dates: start: 20060523, end: 20060608
  2. COUMADIN [Suspect]
     Indication: MYOCARDIAL INFARCTION
     Route: 048
     Dates: start: 20060523, end: 20060608
  3. COUMADIN [Suspect]
     Indication: CORONARY ARTERIAL STENT INSERTION
     Route: 048
     Dates: start: 20060523, end: 20060608
  4. PLAVIX [Suspect]
     Dates: start: 20060523, end: 20060608
  5. NSAID [Concomitant]
  6. PREDNISONE [Concomitant]
  7. ARAVA [Concomitant]
  8. ALTACE [Concomitant]
  9. COREG [Concomitant]
  10. ASPIRIN [Concomitant]
  11. IMDUR [Concomitant]
  12. LANOXIN [Concomitant]

REACTIONS (1)
  - MYOCARDIAL INFARCTION [None]
